FAERS Safety Report 5363793-5 (Version None)
Quarter: 2007Q2

REPORT INFORMATION
  Report Type: 
  Country: None (occurrence: None)
  Receive Date: 20070620
  Receipt Date: 20070608
  Transmission Date: 20071010
  Serious: Yes (Other)
  Sender: FDA-Public Use
  Company Number: US-MERCK-98030023

PATIENT
  Age: 74 Year
  Sex: Female

DRUGS (2)
  1. ZOCOR [Suspect]
     Route: 048
     Dates: start: 19971201, end: 19980101
  2. INSULIN [Concomitant]
     Route: 065

REACTIONS (2)
  - AMYOTROPHIC LATERAL SCLEROSIS [None]
  - SWOLLEN TONGUE [None]
